FAERS Safety Report 5734349-7 (Version None)
Quarter: 2008Q2

REPORT INFORMATION
  Report Type: 
  Country: None (occurrence: None)
  Receive Date: 20080508
  Receipt Date: 20080508
  Transmission Date: 20081010
  Serious: Yes (Life-Threatening, Disabling)
  Sender: FDA-Public Use
  Company Number: None

PATIENT
  Age: 76 Year
  Sex: Female
  Weight: 73 kg

DRUGS (1)
  1. REGULAR INSULIN [Suspect]
     Dosage: Q2H SQ
     Route: 058
     Dates: start: 20070124, end: 20070204

REACTIONS (4)
  - DRUG PRESCRIBING ERROR [None]
  - HYPOGLYCAEMIA [None]
  - INCORRECT DRUG ADMINISTRATION DURATION [None]
  - MEDICATION ERROR [None]
